FAERS Safety Report 19157888 (Version 4)
Quarter: 2021Q3

REPORT INFORMATION
  Report Type: Report from Study
  Country: US (occurrence: US)
  Receive Date: 20210420
  Receipt Date: 20210916
  Transmission Date: 20211014
  Serious: No
  Sender: FDA-Public Use
  Company Number: NVSC2021US088824

PATIENT
  Sex: Male

DRUGS (1)
  1. ENTRESTO [Suspect]
     Active Substance: SACUBITRIL\VALSARTAN
     Indication: PRODUCT USED FOR UNKNOWN INDICATION
     Dosage: 1 DF, BID,(49/51 MG TWICE A DAY)
     Route: 048
     Dates: start: 202101

REACTIONS (5)
  - Paranoid personality disorder [Unknown]
  - Influenza [Recovering/Resolving]
  - Bradykinesia [Unknown]
  - Illness [Recovering/Resolving]
  - Vomiting [Recovering/Resolving]
